FAERS Safety Report 4458078-5 (Version None)
Quarter: 2004Q3

REPORT INFORMATION
  Report Type: 
  Country: None (occurrence: None)
  Receive Date: 20040922
  Receipt Date: 20040902
  Transmission Date: 20050211
  Serious: Yes (Hospitalization)
  Sender: FDA-Public Use
  Company Number: D01200403439

PATIENT
  Age: 77 Year
  Sex: Male

DRUGS (7)
  1. OXALIPLATIN [Suspect]
     Dosage: 85 MG/M2 Q2W
     Route: 042
     Dates: start: 20040820, end: 20040824
  2. (FLUORURACIL [Suspect]
     Dosage: 400 MG/M2 AS IV BOLUS THEN 600 MG/M2 AS 22, INTRAVENOUS NOS
     Route: 042
     Dates: start: 20040820, end: 20040821
  3. (SR57746 OR PLACEBO)  (XALIPRODEN) [Suspect]
     Indication: CHEMOTHERAPY NEUROTOXICITY ATTENUATION
     Dosage: 1 MG QD
     Route: 048
     Dates: start: 20040423, end: 20040901
  4. LEUCOVORIN CALCIUM [Suspect]
     Dosage: 200 MG/M2 AS 2 HOURS INFUSION ON D1-D2 Q2W, INTRAVENOUS NOS
     Route: 042
     Dates: start: 20040820, end: 20040821
  5. BENDROFLUMETHIAZIDE [Concomitant]
  6. ATENOLOL [Concomitant]
  7. ENOXAPARIN SODIUM [Concomitant]

REACTIONS (2)
  - GLYCOSYLATED HAEMOGLOBIN INCREASED [None]
  - HYPERGLYCAEMIA [None]
